FAERS Safety Report 25084769 (Version 1)
Quarter: 2025Q1

REPORT INFORMATION
  Report Type: Spontaneous
  Country: US (occurrence: None)
  Receive Date: 20250317
  Receipt Date: 20250317
  Transmission Date: 20250408
  Serious: Yes (Other)
  Sender: FDA-CTU
  Company Number: None

PATIENT
  Age: 75 Year
  Sex: Male
  Weight: 72.57 kg

DRUGS (1)
  1. EVENITY [Suspect]
     Active Substance: ROMOSOZUMAB-AQQG

REACTIONS (4)
  - Hot flush [None]
  - Gynaecomastia [None]
  - Nipple pain [None]
  - Blood testosterone increased [None]

NARRATIVE: CASE EVENT DATE: 20240517
